FAERS Safety Report 5965543-8 (Version None)
Quarter: 2008Q4

REPORT INFORMATION
  Report Type: 
  Country: None (occurrence: None)
  Receive Date: 20081125
  Receipt Date: 20081003
  Transmission Date: 20090506
  Serious: No
  Sender: FDA-Public Use
  Company Number: US-AMGEN-KDL311382

PATIENT
  Sex: Male

DRUGS (2)
  1. ENBREL [Suspect]
     Indication: RHEUMATOID ARTHRITIS
     Route: 058
     Dates: start: 20060602
  2. ARAVA [Concomitant]
     Route: 048
     Dates: start: 20060401

REACTIONS (3)
  - MUSCLE SPASMS [None]
  - ROTATOR CUFF SYNDROME [None]
  - TREMOR [None]
